FAERS Safety Report 24043233 (Version 1)
Quarter: 2024Q3

REPORT INFORMATION
  Report Type: Spontaneous
  Country: ES (occurrence: ES)
  Receive Date: 20240702
  Receipt Date: 20240702
  Transmission Date: 20241017
  Serious: Yes (Life-Threatening)
  Sender: BEIGENE
  Company Number: ES-ABBVIE-5616089

PATIENT

DRUGS (3)
  1. BRUKINSA [Suspect]
     Active Substance: ZANUBRUTINIB
     Indication: Chronic lymphocytic leukaemia
  2. CALQUENCE [Suspect]
     Active Substance: ACALABRUTINIB
     Indication: Chronic lymphocytic leukaemia
  3. IMBRUVICA [Suspect]
     Active Substance: IBRUTINIB
     Indication: Chronic lymphocytic leukaemia

REACTIONS (13)
  - Renal impairment [Unknown]
  - Pruritus [Unknown]
  - Asthenia [Unknown]
  - Epistaxis [Unknown]
  - Mouth ulceration [Unknown]
  - Skin infection [Unknown]
  - Diarrhoea [Unknown]
  - Oedema peripheral [Unknown]
  - Neutropenia [Unknown]
  - Urinary tract infection [Unknown]
  - Pneumonitis [Unknown]
  - Haematoma [Unknown]
  - Thrombocytopenia [Unknown]
